FAERS Safety Report 6169762-X (Version None)
Quarter: 2009Q2

REPORT INFORMATION
  Report Type: 
  Country: None (occurrence: None)
  Receive Date: 20090428
  Receipt Date: 20090421
  Transmission Date: 20091009
  Serious: Yes (Other)
  Sender: FDA-Public Use
  Company Number: US-ROCHE-628695

PATIENT
  Sex: Female
  Weight: 55.8 kg

DRUGS (3)
  1. PEG-INTERFERON A-2A (RO 25-8310) [Suspect]
     Indication: HEPATITIS C
     Dosage: FORM: PREFILLED SYRINGE
     Route: 065
     Dates: start: 20080430
  2. RIBAVIRIN [Suspect]
     Indication: HEPATITIS C
     Dosage: DIVIDED DOSES
     Route: 065
     Dates: start: 20080430
  3. RIBAVIRIN [Suspect]
     Dosage: DOSE REDUCED
     Route: 065

REACTIONS (2)
  - VAGINAL HAEMORRHAGE [None]
  - WEIGHT DECREASED [None]
